FAERS Safety Report 25302545 (Version 1)
Quarter: 2025Q2

REPORT INFORMATION
  Report Type: Spontaneous
  Country: US (occurrence: US)
  Receive Date: 20250512
  Receipt Date: 20250512
  Transmission Date: 20250717
  Serious: Yes (Hospitalization)
  Sender: MYLAN
  Company Number: US-MYLANLABS-2025M1039412

PATIENT
  Age: 52 Year
  Sex: Female

DRUGS (3)
  1. PREDNISONE [Suspect]
     Active Substance: PREDNISONE
     Indication: Takayasu^s arteritis
  2. PREDNISONE [Suspect]
     Active Substance: PREDNISONE
  3. IBUPROFEN [Suspect]
     Active Substance: IBUPROFEN
     Indication: Chest pain

REACTIONS (4)
  - Colitis ulcerative [Recovered/Resolved]
  - Rectal haemorrhage [Recovered/Resolved]
  - Treatment noncompliance [Unknown]
  - Intentional product misuse [Unknown]
